FAERS Safety Report 20435062 (Version 1)
Quarter: 2022Q1

REPORT INFORMATION
  Report Type: Spontaneous
  Country: SE (occurrence: SE)
  Receive Date: 20220206
  Receipt Date: 20220206
  Transmission Date: 20220423
  Serious: Yes (Other)
  Sender: FDA-Public Use
  Company Number: None

PATIENT
  Age: 77 Year
  Sex: Female

DRUGS (12)
  1. DUPIXENT [Suspect]
     Active Substance: DUPILUMAB
     Indication: Asthma
     Dosage: 300 MG
     Dates: start: 20210719, end: 20210719
  2. BISOPROLOL [Concomitant]
     Active Substance: BISOPROLOL
     Dosage: UNK
     Dates: start: 2019
  3. TRELEGY ELLIPTA [Concomitant]
     Active Substance: FLUTICASONE FUROATE\UMECLIDINIUM BROMIDE\VILANTEROL TRIFENATATE
     Dates: start: 2020
  4. DIMETHICONE [Concomitant]
     Active Substance: DIMETHICONE
     Dosage: UNK
     Dates: start: 2016
  5. ALLOPURINOL [Concomitant]
     Active Substance: ALLOPURINOL
     Dosage: UNK
     Dates: start: 2016
  6. ATORVASTATIN [Concomitant]
     Active Substance: ATORVASTATIN
     Dosage: UNK
     Dates: start: 2019
  7. CANDESARTAN CILEXETIL [Concomitant]
     Active Substance: CANDESARTAN CILEXETIL
     Dosage: UNK
     Dates: start: 2017
  8. CLOPIDOGREL [Concomitant]
     Active Substance: CLOPIDOGREL BISULFATE
     Dosage: UNK
     Dates: start: 2019
  9. METFORMIN HYDROCHLORIDE [Concomitant]
     Active Substance: METFORMIN HYDROCHLORIDE
     Dosage: UNK
     Dates: start: 2020
  10. SPIRONOLACTONE [Concomitant]
     Active Substance: SPIRONOLACTONE
     Dosage: UNK
     Dates: start: 2020
  11. PANTOPRAZOLE [Concomitant]
     Active Substance: PANTOPRAZOLE
     Dosage: UNK
     Dates: start: 2019
  12. EZETIMIBE [Concomitant]
     Active Substance: EZETIMIBE
     Dosage: UNK
     Dates: start: 2019

REACTIONS (4)
  - Pain in extremity [Recovering/Resolving]
  - Back pain [Recovering/Resolving]
  - Asthenia [Recovering/Resolving]
  - Muscular weakness [Recovering/Resolving]

NARRATIVE: CASE EVENT DATE: 20210701
